FAERS Safety Report 20810646 (Version 7)
Quarter: 2022Q2

REPORT INFORMATION
  Report Type: Spontaneous
  Country: PT (occurrence: PT)
  Receive Date: 20220510
  Receipt Date: 20220531
  Transmission Date: 20220721
  Serious: Yes (Life-Threatening, Hospitalization, Other)
  Sender: FDA-Public Use
  Company Number: PT-NOVARTISPH-NVSC2022PT107582

PATIENT
  Age: 68 Year
  Sex: Female

DRUGS (10)
  1. PANTOPRAZOLE [Interacting]
     Active Substance: PANTOPRAZOLE
     Indication: Product used for unknown indication
     Dosage: 40 MG, QD
     Route: 065
  2. METHOTREXATE SODIUM [Interacting]
     Active Substance: METHOTREXATE SODIUM
     Indication: Rheumatoid arthritis
     Dosage: 7.5 MG, QD (APPROXIMATELY 0.15 MG/KG PER DAY (PRESCRIPTION WAS 7.5 MG PER WEEK)
     Route: 048
  3. FOLIC ACID [Concomitant]
     Active Substance: FOLIC ACID
     Indication: Product used for unknown indication
     Dosage: UNK
     Route: 065
  4. DEFLAZACORT [Concomitant]
     Active Substance: DEFLAZACORT
     Indication: Product used for unknown indication
     Dosage: 30 MG, QD
     Route: 065
  5. CYCLOBENZAPRINE HYDROCHLORIDE [Concomitant]
     Active Substance: CYCLOBENZAPRINE HYDROCHLORIDE
     Indication: Product used for unknown indication
     Dosage: 10 MG, QD
     Route: 065
  6. SERTRALINE [Concomitant]
     Active Substance: SERTRALINE HYDROCHLORIDE
     Indication: Product used for unknown indication
     Dosage: 50 MG, QD
     Route: 065
  7. GABAPENTIN [Concomitant]
     Active Substance: GABAPENTIN
     Indication: Product used for unknown indication
     Dosage: 400 MG, QD
     Route: 065
  8. TRAMADOL HYDROCHLORIDE [Concomitant]
     Active Substance: TRAMADOL HYDROCHLORIDE
     Indication: Product used for unknown indication
     Dosage: 100 MG, QD
     Route: 065
  9. CLONAZEPAM [Concomitant]
     Active Substance: CLONAZEPAM
     Indication: Product used for unknown indication
     Dosage: 2 MG, QD
     Route: 065
  10. FENOFIBRATE [Concomitant]
     Active Substance: FENOFIBRATE
     Indication: Product used for unknown indication
     Dosage: 267 MG, QD
     Route: 065

REACTIONS (9)
  - Pneumonitis [Recovered/Resolved]
  - Respiratory failure [Unknown]
  - Drug interaction [Unknown]
  - Mucosal inflammation [Recovered/Resolved]
  - Toxicity to various agents [Unknown]
  - Hypoalbuminaemia [Unknown]
  - Pancytopenia [Recovered/Resolved]
  - Leukopenia [Unknown]
  - Pneumonia pneumococcal [Recovered/Resolved]
